FAERS Safety Report 13662723 (Version 1)
Quarter: 2017Q2

REPORT INFORMATION
  Report Type: Spontaneous
  Country: US (occurrence: US)
  Receive Date: 20170616
  Receipt Date: 20170616
  Transmission Date: 20170830
  Serious: Yes (Disabling)
  Sender: FDA-Public Use
  Company Number: None

PATIENT
  Age: 35 Year
  Sex: Female
  Weight: 103.5 kg

DRUGS (2)
  1. ALBUTEROL. [Concomitant]
     Active Substance: ALBUTEROL
  2. LEVAQUIN [Suspect]
     Active Substance: LEVOFLOXACIN
     Route: 048

REACTIONS (4)
  - Fatigue [None]
  - Pain [None]
  - Malaise [None]
  - Tendon pain [None]

NARRATIVE: CASE EVENT DATE: 20161001
